FAERS Safety Report 24184000 (Version 1)
Quarter: 2024Q3

REPORT INFORMATION
  Report Type: Spontaneous
  Country: US (occurrence: US)
  Receive Date: 20240807
  Receipt Date: 20240807
  Transmission Date: 20241017
  Serious: No
  Sender: SANOFI AVENTIS
  Company Number: US-SA-SAC20240802000495

PATIENT
  Age: 32 Year
  Sex: Female

DRUGS (2)
  1. DUPIXENT [Suspect]
     Active Substance: DUPILUMAB
     Indication: Dermatitis atopic
     Dosage: 2 PENS UNDER THE SKIN ON DAY 1,
     Route: 058
     Dates: start: 202406, end: 202406
  2. DUPIXENT [Suspect]
     Active Substance: DUPILUMAB
     Dosage: 1 PEN ON DAY 15 AND THEN 1 PEN UNDER THE SKIN EVERY 14 DAYS
     Route: 058

REACTIONS (2)
  - Nasopharyngitis [Unknown]
  - Eczema [Unknown]

NARRATIVE: CASE EVENT DATE: 20240701
